FAERS Safety Report 4543331-7 (Version None)
Quarter: 2004Q4

REPORT INFORMATION
  Report Type: 
  Country: None (occurrence: None)
  Receive Date: 20041229
  Receipt Date: 20041214
  Transmission Date: 20050328
  Serious: Yes (Hospitalization)
  Sender: FDA-Public Use
  Company Number: 2004AL001968

PATIENT
  Age: 29 Year
  Sex: Female

DRUGS (4)
  1. SERAX (OXAZEPAM) TABLETS, 15 MG  (ALPHARMA) (SERAX (OXAZEPAM)  TABLETS [Suspect]
     Indication: DEPRESSION
     Dosage: 15MG, TID; PO
     Route: 048
     Dates: end: 20041004
  2. ESCITALOPRAM ({NULL}.) [Suspect]
     Indication: BIPOLAR DISORDER
     Dosage: 20 MG; QD; PO
     Route: 048
     Dates: end: 20041004
  3. LAMOTRIGINE ({NULL}) [Suspect]
     Indication: BIPOLAR DISORDER
     Dosage: 100 MG QD; PO
     Route: 048
     Dates: end: 20041004
  4. TRITTICO ({NULL}) [Suspect]
     Indication: BIPOLAR DISORDER
     Dosage: 100 MG QD; PO
     Route: 048
     Dates: end: 20041004

REACTIONS (6)
  - ANXIETY [None]
  - DEPRESSION [None]
  - DRUG DEPENDENCE [None]
  - DRUG EXPOSURE DURING PREGNANCY [None]
  - DRUG WITHDRAWAL SYNDROME [None]
  - FEAR [None]
